FAERS Safety Report 11025471 (Version 2)
Quarter: 2016Q3

REPORT INFORMATION
  Report Type: Report from Study
  Country: US (occurrence: US)
  Receive Date: 20150414
  Receipt Date: 20160822
  Transmission Date: 20161109
  Serious: Yes (Other)
  Sender: FDA-Public Use
  Company Number: US-SA-2015SA046558

PATIENT
  Age: 68 Year
  Sex: Female

DRUGS (1)
  1. LANTUS [Suspect]
     Active Substance: INSULIN GLARGINE
     Indication: DIABETES MELLITUS
     Dosage: DOSE:50 UNIT(S)
     Route: 065

REACTIONS (3)
  - Cardiac disorder [Unknown]
  - Breast disorder [Unknown]
  - Retinal vascular thrombosis [Unknown]

NARRATIVE: CASE EVENT DATE: 201406
